FAERS Safety Report 8966111 (Version 4)
Quarter: 2013Q1

REPORT INFORMATION
  Report Type: Spontaneous
  Country: DE (occurrence: DE)
  Receive Date: 20121217
  Receipt Date: 20130331
  Transmission Date: 20140127
  Serious: Yes (Other)
  Sender: FDA-Public Use
  Company Number: DE-AMGEN-DEUSP2012080147

PATIENT
  Age: 77 Year
  Sex: Male
  Weight: 87 kg

DRUGS (19)
  1. VECTIBIX [Suspect]
     Indication: COLON CANCER
     Dosage: 6 MG/KG, EVERY 14 DAYS
     Route: 042
     Dates: start: 20120614, end: 20130217
  2. METFORMIN [Concomitant]
     Dosage: 850 MG, BID
  3. MAGNESIUM-DIASPORAL                /00434501/ [Concomitant]
     Dosage: UNK
  4. DIASTABOL [Concomitant]
     Dosage: 100 MG, UNK HALF TID
  5. XELODA [Concomitant]
     Indication: COLON CANCER
     Dosage: UNK
  6. 5 FU [Concomitant]
     Indication: COLON CANCER
     Dosage: UNK
  7. OXALIPLATIN [Concomitant]
     Indication: COLON CANCER
     Dosage: UNK
  8. JALRA [Concomitant]
     Dosage: 50 MG, QD
  9. ASS [Concomitant]
     Dosage: 100 MG, QD
  10. OMEPRAZOLE [Concomitant]
     Dosage: 20 MG, BID (EVERY EVENING)
  11. NORTRILEN [Concomitant]
     Dosage: 25 MG, BID
  12. LEVOPAR [Concomitant]
     Dosage: 125 MG, TID
  13. LAMOTRIGINE [Concomitant]
     Dosage: 100 MG, QD
  14. SIMVASTATIN [Concomitant]
     Dosage: 40 MG, UNK HALF QD
  15. BISOPROLOL [Concomitant]
     Dosage: 2.5 MG, QD (HALF QD)
  16. ALLOPURINOL [Concomitant]
     Dosage: 300 MG, UNK (HALF EVERY 2 DAY)
  17. TALCID [Concomitant]
     Dosage: UNK (BEI BDARF -IF REQUIRED)
  18. ZOPICLODURA [Concomitant]
     Dosage: 7.5 MG, UNK (1/2 AS REQUIRED)
  19. HALCION [Concomitant]
     Dosage: 0.25 MG, UNK (1/2 AS REQUIRED)

REACTIONS (15)
  - Magnesium deficiency [Not Recovered/Not Resolved]
  - Arteriosclerosis [Unknown]
  - Hepatic steatosis [Unknown]
  - Cardiac disorder [Unknown]
  - Metastases to liver [Not Recovered/Not Resolved]
  - Disability [Unknown]
  - Calcium deficiency [Unknown]
  - Diverticulitis [Unknown]
  - Osteoarthritis [Unknown]
  - Muscle spasms [Unknown]
  - Hypoacusis [Unknown]
  - Skin fissures [Unknown]
  - Skin exfoliation [Not Recovered/Not Resolved]
  - Acne [Recovering/Resolving]
  - Rash pustular [Recovering/Resolving]
